FAERS Safety Report 6329150-X (Version None)
Quarter: 2009Q3

REPORT INFORMATION
  Report Type: 
  Country: None (occurrence: None)
  Receive Date: 20090826
  Receipt Date: 20090817
  Transmission Date: 20100115
  Serious: Yes (Death)
  Sender: FDA-Public Use
  Company Number: KR-ROCHE-651090

PATIENT
  Age: 63 Year
  Sex: Female

DRUGS (1)
  1. TAMIFLU [Suspect]
     Route: 048
     Dates: start: 20090804, end: 20090808

REACTIONS (2)
  - ACUTE RESPIRATORY DISTRESS SYNDROME [None]
  - MULTI-ORGAN FAILURE [None]
